FAERS Safety Report 6146124-2 (Version None)
Quarter: 2009Q2

REPORT INFORMATION
  Report Type: 
  Country: None (occurrence: None)
  Receive Date: 20090407
  Receipt Date: 20090330
  Transmission Date: 20091009
  Serious: Yes (Hospitalization, Other)
  Sender: FDA-Public Use
  Company Number: AU-NOVOPROD-282799

PATIENT
  Sex: Male

DRUGS (3)
  1. NOVORAPID [Suspect]
     Indication: DRUG USE FOR UNKNOWN INDICATION
  2. GLUCAGEN 1 MG  HYPOKIT [Suspect]
     Indication: DRUG USE FOR UNKNOWN INDICATION
  3. LANTUS [Concomitant]

REACTIONS (3)
  - BLOOD GLUCOSE DECREASED [None]
  - DEVICE FAILURE [None]
  - MYOCARDIAL INFARCTION [None]
